FAERS Safety Report 7242500-5 (Version None)
Quarter: 2011Q1

REPORT INFORMATION
  Report Type: 
  Country: None (occurrence: None)
  Receive Date: 20110114
  Receipt Date: 20110107
  Transmission Date: 20110831
  Serious: Yes (Hospitalization)
  Sender: FDA-Public Use
  Company Number: TPA2011A00096

PATIENT
  Age: 51 Year
  Sex: Male

DRUGS (2)
  1. UNKNOWN STATIN [Concomitant]
  2. ADENURIC (FEBUXOSTAT) [Suspect]
     Indication: HYPERURICAEMIA
     Dosage: 80 MG (80 MG, 1 IN 1 D) ORAL
     Route: 048
     Dates: start: 20100401, end: 20101101

REACTIONS (3)
  - PANCYTOPENIA [None]
  - PYREXIA [None]
  - URTICARIA [None]
